FAERS Safety Report 25617999 (Version 1)
Quarter: 2025Q3

REPORT INFORMATION
  Report Type: Spontaneous
  Country: US (occurrence: None)
  Receive Date: 20250729
  Receipt Date: 20250729
  Transmission Date: 20251021
  Serious: Yes (Life-Threatening, Hospitalization, Disabling)
  Sender: FDA-CTU
  Company Number: None

PATIENT
  Age: 54 Year
  Sex: Female

DRUGS (7)
  1. ZOLOFT [Suspect]
     Active Substance: SERTRALINE HYDROCHLORIDE
     Indication: Depression
     Dates: start: 19960101, end: 19980101
  2. ZOLOFT [Suspect]
     Active Substance: SERTRALINE HYDROCHLORIDE
     Indication: Anxiety
  3. CELEXA [Suspect]
     Active Substance: CITALOPRAM HYDROBROMIDE
  4. LEXAPRO [Suspect]
     Active Substance: ESCITALOPRAM OXALATE
  5. PROZAC [Suspect]
     Active Substance: FLUOXETINE HYDROCHLORIDE
  6. VENLAFAXINE [Suspect]
     Active Substance: VENLAFAXINE HYDROCHLORIDE
     Indication: Depression
     Dates: start: 19960101, end: 19980101
  7. VENLAFAXINE [Suspect]
     Active Substance: VENLAFAXINE HYDROCHLORIDE
     Indication: Anxiety

REACTIONS (17)
  - Therapy cessation [None]
  - Anxiety [None]
  - Obsessive-compulsive disorder [None]
  - Intrusive thoughts [None]
  - Insomnia [None]
  - Disturbance in attention [None]
  - Conversion disorder [None]
  - Depression [None]
  - Withdrawal syndrome [None]
  - Wrong product administered [None]
  - Drug ineffective [None]
  - Suicidal ideation [None]
  - Memory impairment [None]
  - Quality of life decreased [None]
  - Cognitive disorder [None]
  - Social problem [None]
  - Catatonia [None]
